FAERS Safety Report 6745116-X (Version None)
Quarter: 2010Q2

REPORT INFORMATION
  Report Type: 
  Country: None (occurrence: None)
  Receive Date: 20100527
  Receipt Date: 20100524
  Transmission Date: 20101027
  Serious: Yes (Hospitalization)
  Sender: FDA-Public Use
  Company Number: FR-WATSON-2010-06995

PATIENT
  Age: 63 Year
  Sex: Female

DRUGS (1)
  1. LAMOTRIGINE [Suspect]
     Indication: EPILEPSY
     Dosage: UNK

REACTIONS (5)
  - DRUG RASH WITH EOSINOPHILIA AND SYSTEMIC SYMPTOMS [None]
  - HUMAN HERPESVIRUS 6 INFECTION [None]
  - INTRAOCULAR PRESSURE INCREASED [None]
  - UVEITIS [None]
  - VISUAL ACUITY REDUCED [None]
